FAERS Safety Report 20736209 (Version 1)
Quarter: 2022Q2

REPORT INFORMATION
  Report Type: Spontaneous
  Country: JP (occurrence: JP)
  Receive Date: 20220421
  Receipt Date: 20220421
  Transmission Date: 20220721
  Serious: Yes (Other)
  Sender: FDA-Public Use
  Company Number: JP-Merck Healthcare KGaA-9313286

PATIENT
  Age: 75 Year
  Sex: Male
  Weight: 51 kg

DRUGS (4)
  1. ERBITUX [Suspect]
     Active Substance: CETUXIMAB
     Indication: Rectal cancer metastatic
     Dosage: UNK, UNKNOWN
     Route: 041
  2. FLUOROURACIL [Concomitant]
     Active Substance: FLUOROURACIL
     Indication: Rectal cancer metastatic
     Dosage: UNK, UNKNOWN
  3. LEUCOVORIN CALCIUM [Concomitant]
     Active Substance: LEUCOVORIN CALCIUM
     Indication: Rectal cancer metastatic
     Dosage: UNK, UNKNOWN
  4. OXALIPLATIN [Concomitant]
     Active Substance: OXALIPLATIN
     Indication: Rectal cancer metastatic
     Dosage: UNK, UNKNOWN

REACTIONS (6)
  - Urinary tract adhesions [Unknown]
  - Procedural haemorrhage [Unknown]
  - Cancer surgery [Unknown]
  - Hepatectomy [Unknown]
  - Proctectomy [Unknown]
  - Ileostomy [Unknown]
